FAERS Safety Report 24548535 (Version 1)
Quarter: 2024Q4

REPORT INFORMATION
  Report Type: Spontaneous
  Country: US (occurrence: None)
  Receive Date: 20241023
  Receipt Date: 20241023
  Transmission Date: 20250115
  Serious: Yes (Hospitalization)
  Sender: Public
  Company Number: None

PATIENT
  Age: 82 Year
  Sex: Female
  Weight: 88 kg

DRUGS (1)
  1. EMPAGLIFLOZIN [Suspect]
     Active Substance: EMPAGLIFLOZIN
     Indication: Cardiac failure congestive
     Dosage: OTHER FREQUENCY : AM;?
     Route: 048
     Dates: end: 20240522

REACTIONS (3)
  - Acute kidney injury [None]
  - Urinary tract infection [None]
  - Urinary tract infection [None]

NARRATIVE: CASE EVENT DATE: 20240516
